FAERS Safety Report 4901870-0 (Version None)
Quarter: 2006Q1

REPORT INFORMATION
  Report Type: 
  Country: None (occurrence: None)
  Receive Date: 20060203
  Receipt Date: 20060203
  Transmission Date: 20060701
  Serious: Yes (Life-Threatening)
  Sender: FDA-Public Use
  Company Number: None

PATIENT
  Sex: Female

DRUGS (7)
  1. GEMCITABINE [Suspect]
     Indication: BONE NEOPLASM MALIGNANT
  2. GEMCITABINE [Suspect]
     Indication: BREAST CANCER METASTATIC
  3. OXYCONTIN [Concomitant]
  4. PREDNISONE [Concomitant]
  5. DIAVAN [Concomitant]
  6. WELLBUTRIN [Concomitant]
  7. IBUPROFIN [Concomitant]

REACTIONS (1)
  - THROMBOTIC MICROANGIOPATHY [None]
